FAERS Safety Report 8794231 (Version 1)
Quarter: 2012Q4

REPORT INFORMATION
  Report Type: 
  Country: EC (occurrence: EC)
  Receive Date: 20120917
  Receipt Date: 20120917
  Transmission Date: 20130627
  Serious: Yes (Other)
  Sender: FDA-Public Use
  Company Number: PHHY2012EC080190

PATIENT
  Sex: Female

DRUGS (3)
  1. ACLASTA [Suspect]
     Indication: OSTEOPOROSIS
     Dosage: 5 mg, (5mg/100ml) UNK
     Route: 042
     Dates: start: 20100403
  2. PARACETAMOL [Concomitant]
  3. CALCIUM [Concomitant]

REACTIONS (1)
  - Fall [Recovering/Resolving]
